FAERS Safety Report 24735810 (Version 1)
Quarter: 2024Q4

REPORT INFORMATION
  Report Type: Spontaneous
  Country: US (occurrence: US)
  Receive Date: 20241216
  Receipt Date: 20241216
  Transmission Date: 20250114
  Serious: No
  Sender: ROCHE
  Company Number: US-ROCHE-10000153465

PATIENT
  Sex: Female

DRUGS (1)
  1. ACTEMRA [Suspect]
     Active Substance: TOCILIZUMAB
     Indication: Rheumatoid arthritis
     Route: 058
     Dates: start: 202311

REACTIONS (4)
  - No adverse event [Unknown]
  - Wrong technique in product usage process [Unknown]
  - Device defective [Unknown]
  - Device defective [Unknown]

NARRATIVE: CASE EVENT DATE: 20241206
